FAERS Safety Report 13286806 (Version 4)
Quarter: 2017Q2

REPORT INFORMATION
  Report Type: Spontaneous
  Country: ES (occurrence: ES)
  Receive Date: 20170302
  Receipt Date: 20170620
  Transmission Date: 20170830
  Serious: Yes (Hospitalization, Other)
  Sender: FDA-Public Use
  Company Number: ES-GILEAD-2017-0257066

PATIENT
  Age: 67 Year
  Sex: Male

DRUGS (5)
  1. SEPTRIN [Concomitant]
     Active Substance: SULFAMETHOXAZOLE\TRIMETHOPRIM
     Indication: ANTIVIRAL PROPHYLAXIS
     Dosage: UNK
     Dates: start: 20161229
  2. RITUXIMAB [Concomitant]
     Active Substance: RITUXIMAB
     Indication: CHRONIC LYMPHOCYTIC LEUKAEMIA
     Dosage: UNK, CYCLICAL
     Route: 065
     Dates: start: 20161229
  3. RITUXIMAB [Concomitant]
     Active Substance: RITUXIMAB
     Dosage: UNK
     Route: 065
     Dates: start: 20170112
  4. ACYCLOVIR                          /00587301/ [Concomitant]
     Active Substance: ACYCLOVIR
     Indication: ANTIVIRAL PROPHYLAXIS
     Dosage: UNK
     Dates: start: 20161229
  5. ZYDELIG [Suspect]
     Active Substance: IDELALISIB
     Indication: CHRONIC LYMPHOCYTIC LEUKAEMIA
     Dosage: 150 MG, BID
     Route: 065
     Dates: start: 20161229, end: 20170322

REACTIONS (12)
  - Pericardial effusion [Unknown]
  - Atrial fibrillation [Unknown]
  - Pneumonia cytomegaloviral [Unknown]
  - Respiratory failure [Unknown]
  - Empyema [Unknown]
  - Hypotension [Unknown]
  - Leukocytosis [Recovering/Resolving]
  - Off label use [Not Recovered/Not Resolved]
  - Lymphocytosis [Unknown]
  - Pneumocystis jirovecii infection [Recovered/Resolved]
  - Hypokalaemia [Unknown]
  - Pneumonia [Unknown]

NARRATIVE: CASE EVENT DATE: 2017
